FAERS Safety Report 18158775 (Version 1)
Quarter: 2020Q3

REPORT INFORMATION
  Report Type: Spontaneous
  Country: US (occurrence: US)
  Receive Date: 20200817
  Receipt Date: 20200817
  Transmission Date: 20201103
  Serious: No
  Sender: FDA-Public Use
  Company Number: NVSC2020US226492

PATIENT
  Sex: Male

DRUGS (2)
  1. VOLTAREN [Suspect]
     Active Substance: DICLOFENAC SODIUM
     Indication: EPICONDYLITIS
     Dosage: UNK (3 TO 4 TIMES)
     Route: 065
     Dates: start: 202007
  2. VOLTAREN EMULGEL ^NOVARTIS^ [Concomitant]
     Active Substance: DICLOFENAC DIETHYLAMINE
     Indication: PRODUCT USED FOR UNKNOWN INDICATION
     Dosage: UNK
     Route: 065

REACTIONS (5)
  - Blister [Unknown]
  - Rash [Unknown]
  - Product use in unapproved indication [Unknown]
  - Dermatitis atopic [Unknown]
  - Product use issue [Unknown]
